FAERS Safety Report 5903613-0 (Version None)
Quarter: 2008Q3

REPORT INFORMATION
  Report Type: 
  Country: None (occurrence: None)
  Receive Date: 20080930
  Receipt Date: 20080924
  Transmission Date: 20090109
  Serious: Yes (Hospitalization)
  Sender: FDA-Public Use
  Company Number: JP-PFIZER INC-2008081291

PATIENT
  Age: 80 Year
  Sex: Female

DRUGS (2)
  1. HYDROXYZINE HYDROCHLORIDE [Suspect]
  2. PENTAZOCINE LACTATE [Suspect]

REACTIONS (1)
  - RESPIRATORY DEPRESSION [None]
